FAERS Safety Report 24376909 (Version 1)
Quarter: 2024Q3

REPORT INFORMATION
  Report Type: Spontaneous
  Country: CN (occurrence: US)
  Receive Date: 20240930
  Receipt Date: 20240930
  Transmission Date: 20241017
  Serious: No
  Sender: MERCK
  Company Number: CN-009507513-2409USA003757

PATIENT
  Age: 32 Year
  Sex: Male

DRUGS (4)
  1. NOXAFIL [Interacting]
     Active Substance: POSACONAZOLE
     Indication: Prophylaxis
  2. TACROLIMUS [Interacting]
     Active Substance: TACROLIMUS
     Indication: Graft versus host disease
  3. METHYLPREDNISOLONE [Concomitant]
     Active Substance: METHYLPREDNISOLONE
     Indication: Graft versus host disease
  4. RUXOLITINIB [Concomitant]
     Active Substance: RUXOLITINIB
     Indication: Graft versus host disease

REACTIONS (1)
  - Labelled drug-drug interaction issue [Unknown]
